FAERS Safety Report 11120712 (Version 2)
Quarter: 2015Q3

REPORT INFORMATION
  Report Type: Spontaneous
  Country: US (occurrence: US)
  Receive Date: 20150519
  Receipt Date: 20150714
  Transmission Date: 20151125
  Serious: No
  Sender: FDA-Public Use
  Company Number: US-BAYER-2015-220147

PATIENT
  Age: 81 Year

DRUGS (2)
  1. ADEMPAS [Suspect]
     Active Substance: RIOCIGUAT
     Dosage: 1.5 MG, TID
     Route: 048
     Dates: start: 20150408, end: 20150427
  2. ADEMPAS [Suspect]
     Active Substance: RIOCIGUAT
     Dosage: 1 MG, TID
     Dates: start: 20150326

REACTIONS (3)
  - Oropharyngeal pain [Recovered/Resolved]
  - Upper-airway cough syndrome [Recovered/Resolved]
  - Constipation [Recovered/Resolved]
